FAERS Safety Report 19325833 (Version 6)
Quarter: 2024Q3

REPORT INFORMATION
  Report Type: Spontaneous
  Country: US (occurrence: US)
  Receive Date: 20210528
  Receipt Date: 20240704
  Transmission Date: 20241016
  Serious: No
  Sender: PFIZER
  Company Number: US-PFIZER INC-2021383456

PATIENT
  Age: 66 Year
  Sex: Female
  Weight: 72.57 kg

DRUGS (6)
  1. XELJANZ XR [Suspect]
     Active Substance: TOFACITINIB CITRATE
     Indication: Psoriatic arthropathy
     Dosage: 11 MG, DAILY
     Route: 048
     Dates: start: 2023
  2. XELJANZ XR [Suspect]
     Active Substance: TOFACITINIB CITRATE
     Indication: Parapsoriasis
     Dosage: 11 MG, DAILY
     Route: 048
     Dates: end: 2023
  3. XELJANZ XR [Suspect]
     Active Substance: TOFACITINIB CITRATE
     Dosage: 11 MG, DAILY
     Route: 048
     Dates: start: 2023
  4. WELLBUTRIN [Concomitant]
     Active Substance: BUPROPION HYDROCHLORIDE
     Dosage: UNK
  5. NALTREXONE [Concomitant]
     Active Substance: NALTREXONE
     Dosage: UNK
  6. XYZAL [Concomitant]
     Active Substance: LEVOCETIRIZINE DIHYDROCHLORIDE
     Indication: Hypersensitivity
     Dosage: 5 MG

REACTIONS (17)
  - Asthma [Unknown]
  - Immune system disorder [Unknown]
  - Asthenia [Unknown]
  - Sinus headache [Unknown]
  - Contusion [Unknown]
  - Anxiety [Unknown]
  - Discomfort [Unknown]
  - Fibromyalgia [Unknown]
  - Dry eye [Unknown]
  - Illness [Unknown]
  - Sensitive skin [Unknown]
  - Pruritus [Unknown]
  - Sinus congestion [Unknown]
  - Blood cholesterol increased [Unknown]
  - Viral sinusitis [Unknown]
  - Headache [Unknown]
  - Product dose omission issue [Unknown]

NARRATIVE: CASE EVENT DATE: 20230101
